FAERS Safety Report 5352166-7 (Version None)
Quarter: 2007Q2

REPORT INFORMATION
  Report Type: 
  Country: None (occurrence: None)
  Receive Date: 20070607
  Receipt Date: 20070529
  Transmission Date: 20071010
  Serious: Yes (Hospitalization, Other)
  Sender: FDA-Public Use
  Company Number: 2007SP002293

PATIENT
  Age: 44 Year
  Sex: Female
  Weight: 63.05 kg

DRUGS (4)
  1. PEG-INTRON [Suspect]
     Indication: HEPATITIS C
     Dates: start: 20060816
  2. RIBAVIRIN [Suspect]
     Indication: HEPATITIS C
     Dosage: PO
     Route: 048
     Dates: start: 20060816
  3. SEROQUEL [Concomitant]
  4. CYMBALTA [Concomitant]

REACTIONS (26)
  - ALOPECIA [None]
  - ARTHRALGIA [None]
  - BLOOD PRESSURE INCREASED [None]
  - BRONCHITIS [None]
  - CHEST PAIN [None]
  - DECREASED APPETITE [None]
  - DEPRESSION [None]
  - DIZZINESS [None]
  - FATIGUE [None]
  - HAEMATEMESIS [None]
  - HEADACHE [None]
  - HEPATIC PAIN [None]
  - HEPATITIS [None]
  - HEPATOMEGALY [None]
  - JOINT EFFUSION [None]
  - JOINT SWELLING [None]
  - LOSS OF CONSCIOUSNESS [None]
  - MUSCLE ATROPHY [None]
  - PNEUMONIA [None]
  - RESPIRATORY TRACT CONGESTION [None]
  - SHOCK [None]
  - SKIN INFECTION [None]
  - SKIN ULCER [None]
  - SUICIDAL IDEATION [None]
  - SWELLING FACE [None]
  - TRICHORRHEXIS [None]
